FAERS Safety Report 21388612 (Version 6)
Quarter: 2025Q3

REPORT INFORMATION
  Report Type: Spontaneous
  Country: CA (occurrence: CA)
  Receive Date: 20220928
  Receipt Date: 20250711
  Transmission Date: 20251021
  Serious: Yes (Death, Other)
  Sender: BRISTOL-MYERS SQUIBB COMPANY
  Company Number: CA-BRISTOL-MYERS SQUIBB COMPANY-2022-113202

PATIENT
  Age: 44 Year
  Sex: Female
  Weight: 68 kg

DRUGS (764)
  1. ORENCIA [Suspect]
     Active Substance: ABATACEPT
     Indication: Rheumatoid arthritis
     Route: 058
  2. ORENCIA [Suspect]
     Active Substance: ABATACEPT
     Indication: Psoriatic arthropathy
     Route: 058
  3. ORENCIA [Suspect]
     Active Substance: ABATACEPT
     Route: 058
  4. ORENCIA [Suspect]
     Active Substance: ABATACEPT
     Route: 058
  5. ORENCIA [Suspect]
     Active Substance: ABATACEPT
     Route: 058
  6. ORENCIA [Suspect]
     Active Substance: ABATACEPT
     Route: 058
  7. ORENCIA [Suspect]
     Active Substance: ABATACEPT
     Route: 058
  8. ORENCIA [Suspect]
     Active Substance: ABATACEPT
     Route: 058
  9. ORENCIA [Suspect]
     Active Substance: ABATACEPT
     Indication: Rheumatoid arthritis
     Route: 042
  10. ORENCIA [Suspect]
     Active Substance: ABATACEPT
     Indication: Psoriatic arthropathy
     Route: 042
  11. ORENCIA [Suspect]
     Active Substance: ABATACEPT
     Route: 041
  12. ORENCIA [Suspect]
     Active Substance: ABATACEPT
     Route: 042
  13. ORENCIA [Suspect]
     Active Substance: ABATACEPT
     Indication: Rheumatoid arthritis
     Dosage: FREQUENCY: EVERY DAY
     Route: 017
  14. ORENCIA [Suspect]
     Active Substance: ABATACEPT
     Indication: Psoriatic arthropathy
  15. ORENCIA [Suspect]
     Active Substance: ABATACEPT
     Dosage: FREQUENCY: EVERY DAY
     Route: 048
  16. TRIAMCINOLONE ACETONIDE [Suspect]
     Active Substance: TRIAMCINOLONE ACETONIDE
     Indication: Product used for unknown indication
  17. ORENCIA [Suspect]
     Active Substance: ABATACEPT
     Indication: Rheumatoid arthritis
     Dosage: FREQUENCY: EVERY DAY
     Route: 015
  18. ORENCIA [Suspect]
     Active Substance: ABATACEPT
     Indication: Psoriatic arthropathy
     Route: 040
  19. ORENCIA [Suspect]
     Active Substance: ABATACEPT
     Route: 067
  20. ORENCIA [Suspect]
     Active Substance: ABATACEPT
     Route: 048
  21. ORENCIA [Suspect]
     Active Substance: ABATACEPT
     Route: 067
  22. ORENCIA [Suspect]
     Active Substance: ABATACEPT
     Route: 040
  23. ORENCIA [Suspect]
     Active Substance: ABATACEPT
     Indication: Rheumatoid arthritis
     Dosage: FREQUENCY: EVERY DAY
     Route: 048
  24. ORENCIA [Suspect]
     Active Substance: ABATACEPT
     Indication: Psoriatic arthropathy
  25. FLUMETHASONE PIVALATE [Concomitant]
     Active Substance: FLUMETHASONE PIVALATE
     Indication: Rheumatoid arthritis
     Route: 003
  26. FLUMETHASONE PIVALATE [Concomitant]
     Active Substance: FLUMETHASONE PIVALATE
  27. FLUMETHASONE PIVALATE [Concomitant]
     Active Substance: FLUMETHASONE PIVALATE
  28. FLUMETHASONE PIVALATE [Concomitant]
     Active Substance: FLUMETHASONE PIVALATE
     Route: 058
  29. FLUMETHASONE PIVALATE [Concomitant]
     Active Substance: FLUMETHASONE PIVALATE
  30. ACETAMINOPHEN [Concomitant]
     Active Substance: ACETAMINOPHEN
     Indication: Rheumatoid arthritis
     Route: 048
  31. ACETAMINOPHEN [Concomitant]
     Active Substance: ACETAMINOPHEN
     Indication: Pain
     Route: 048
  32. ACETAMINOPHEN [Concomitant]
     Active Substance: ACETAMINOPHEN
     Indication: Pyrexia
  33. ACETAMINOPHEN [Concomitant]
     Active Substance: ACETAMINOPHEN
     Route: 048
  34. ACETAMINOPHEN\PROPOXYPHENE HYDROCHLORIDE [Concomitant]
     Active Substance: ACETAMINOPHEN\PROPOXYPHENE HYDROCHLORIDE
     Indication: Product used for unknown indication
  35. ACETAMINOPHEN\CAFFEINE\DIHYDROCODEINE BITARTRATE [Concomitant]
     Active Substance: ACETAMINOPHEN\CAFFEINE\DIHYDROCODEINE BITARTRATE
     Indication: Product used for unknown indication
  36. OXYCODONE AND ACETAMINOPHEN [Concomitant]
     Active Substance: ACETAMINOPHEN\OXYCODONE HYDROCHLORIDE
     Indication: Product used for unknown indication
  37. ACTEMRA [Concomitant]
     Active Substance: TOCILIZUMAB
     Indication: Rheumatoid arthritis
     Route: 040
  38. ACTEMRA [Concomitant]
     Active Substance: TOCILIZUMAB
     Route: 040
  39. ACTEMRA [Concomitant]
     Active Substance: TOCILIZUMAB
     Route: 061
  40. ACTEMRA [Concomitant]
     Active Substance: TOCILIZUMAB
     Route: 061
  41. ACTEMRA [Concomitant]
     Active Substance: TOCILIZUMAB
     Route: 040
  42. ACTEMRA [Concomitant]
     Active Substance: TOCILIZUMAB
     Route: 040
  43. ACTEMRA [Concomitant]
     Active Substance: TOCILIZUMAB
  44. ACTEMRA [Concomitant]
     Active Substance: TOCILIZUMAB
     Route: 058
  45. ACTEMRA [Concomitant]
     Active Substance: TOCILIZUMAB
     Route: 048
  46. ACTEMRA [Concomitant]
     Active Substance: TOCILIZUMAB
     Route: 040
  47. ACTEMRA [Concomitant]
     Active Substance: TOCILIZUMAB
     Route: 040
  48. ACTEMRA [Concomitant]
     Active Substance: TOCILIZUMAB
     Route: 016
  49. ACTEMRA [Concomitant]
     Active Substance: TOCILIZUMAB
  50. ACTEMRA [Concomitant]
     Active Substance: TOCILIZUMAB
  51. ACTEMRA [Concomitant]
     Active Substance: TOCILIZUMAB
  52. ACTEMRA [Concomitant]
     Active Substance: TOCILIZUMAB
  53. ACTEMRA [Concomitant]
     Active Substance: TOCILIZUMAB
     Route: 040
  54. ACTEMRA [Concomitant]
     Active Substance: TOCILIZUMAB
     Route: 040
  55. ACTEMRA [Concomitant]
     Active Substance: TOCILIZUMAB
     Route: 058
  56. ACTEMRA [Concomitant]
     Active Substance: TOCILIZUMAB
     Route: 058
  57. ACTEMRA [Concomitant]
     Active Substance: TOCILIZUMAB
  58. ACTEMRA [Concomitant]
     Active Substance: TOCILIZUMAB
     Route: 016
  59. ADALIMUMAB [Concomitant]
     Active Substance: ADALIMUMAB
     Indication: Psoriatic arthropathy
     Route: 058
  60. ADALIMUMAB [Concomitant]
     Active Substance: ADALIMUMAB
     Indication: Rheumatoid arthritis
     Route: 048
  61. ADALIMUMAB [Concomitant]
     Active Substance: ADALIMUMAB
     Route: 058
  62. ADALIMUMAB [Concomitant]
     Active Substance: ADALIMUMAB
     Route: 058
  63. ADALIMUMAB [Concomitant]
     Active Substance: ADALIMUMAB
  64. ADALIMUMAB [Concomitant]
     Active Substance: ADALIMUMAB
     Route: 058
  65. ALENDRONATE SODIUM [Concomitant]
     Active Substance: ALENDRONATE SODIUM
     Indication: Rheumatoid arthritis
     Route: 016
  66. ALENDRONATE SODIUM [Concomitant]
     Active Substance: ALENDRONATE SODIUM
  67. ALENDRONATE SODIUM [Concomitant]
     Active Substance: ALENDRONATE SODIUM
     Route: 048
  68. ALENDRONATE SODIUM [Concomitant]
     Active Substance: ALENDRONATE SODIUM
     Route: 048
  69. ALENDRONATE SODIUM [Concomitant]
     Active Substance: ALENDRONATE SODIUM
     Route: 058
  70. ALENDRONATE SODIUM [Concomitant]
     Active Substance: ALENDRONATE SODIUM
  71. LEFLUNOMIDE [Concomitant]
     Active Substance: LEFLUNOMIDE
     Indication: Rheumatoid arthritis
     Route: 048
  72. PREDNISONE [Concomitant]
     Active Substance: PREDNISONE
     Indication: Rheumatoid arthritis
  73. PREDNISONE [Concomitant]
     Active Substance: PREDNISONE
     Indication: Systemic lupus erythematosus
  74. PREDNISONE [Concomitant]
     Active Substance: PREDNISONE
     Indication: Synovitis
  75. PREDNISONE [Concomitant]
     Active Substance: PREDNISONE
     Indication: Psoriatic arthropathy
     Route: 048
  76. PREDNISONE [Concomitant]
     Active Substance: PREDNISONE
     Indication: Pemphigus
     Route: 048
  77. PREDNISONE [Concomitant]
     Active Substance: PREDNISONE
     Indication: Inflammation
  78. PREDNISONE [Concomitant]
     Active Substance: PREDNISONE
     Indication: Bursitis
     Route: 040
  79. PREDNISONE [Concomitant]
     Active Substance: PREDNISONE
     Route: 048
  80. PREDNISONE [Concomitant]
     Active Substance: PREDNISONE
     Route: 048
  81. ARAVA [Concomitant]
     Active Substance: LEFLUNOMIDE
     Indication: Rheumatoid arthritis
     Route: 048
  82. ARAVA [Concomitant]
     Active Substance: LEFLUNOMIDE
     Route: 019
  83. ARAVA [Concomitant]
     Active Substance: LEFLUNOMIDE
     Route: 048
  84. ARAVA [Concomitant]
     Active Substance: LEFLUNOMIDE
     Route: 048
  85. ARAVA [Concomitant]
     Active Substance: LEFLUNOMIDE
     Route: 005
  86. ARAVA [Concomitant]
     Active Substance: LEFLUNOMIDE
  87. ARAVA [Concomitant]
     Active Substance: LEFLUNOMIDE
     Route: 019
  88. ARAVA [Concomitant]
     Active Substance: LEFLUNOMIDE
  89. ARAVA [Concomitant]
     Active Substance: LEFLUNOMIDE
     Route: 048
  90. ARAVA [Concomitant]
     Active Substance: LEFLUNOMIDE
  91. ARAVA [Concomitant]
     Active Substance: LEFLUNOMIDE
  92. ACETAMINOPHEN\CAFFEINE\CODEINE PHOSPHATE [Concomitant]
     Active Substance: ACETAMINOPHEN\CAFFEINE\CODEINE PHOSPHATE
     Indication: Product used for unknown indication
  93. ATIVAN [Concomitant]
     Active Substance: LORAZEPAM
     Indication: Rheumatoid arthritis
  94. ATIVAN [Concomitant]
     Active Substance: LORAZEPAM
     Indication: Anxiety
  95. CAFFEINE [Concomitant]
     Active Substance: CAFFEINE
     Indication: Rheumatoid arthritis
  96. CAFFEINE [Concomitant]
     Active Substance: CAFFEINE
  97. CELEBREX [Concomitant]
     Active Substance: CELECOXIB
     Indication: Rheumatoid arthritis
  98. CELEBREX [Concomitant]
     Active Substance: CELECOXIB
     Indication: Arthritis
     Route: 048
  99. CELEBREX [Concomitant]
     Active Substance: CELECOXIB
     Route: 048
  100. CELEBREX [Concomitant]
     Active Substance: CELECOXIB
     Route: 048
  101. CELEBREX [Concomitant]
     Active Substance: CELECOXIB
     Route: 048
  102. CELEBREX [Concomitant]
     Active Substance: CELECOXIB
  103. CELEBREX [Concomitant]
     Active Substance: CELECOXIB
     Route: 048
  104. CELEBREX [Concomitant]
     Active Substance: CELECOXIB
  105. CETIRIZINE [Concomitant]
     Active Substance: CETIRIZINE HYDROCHLORIDE
     Indication: Rheumatoid arthritis
  106. CETIRIZINE [Concomitant]
     Active Substance: CETIRIZINE HYDROCHLORIDE
  107. CETIRIZINE [Concomitant]
     Active Substance: CETIRIZINE HYDROCHLORIDE
  108. CETIRIZINE [Concomitant]
     Active Substance: CETIRIZINE HYDROCHLORIDE
  109. CETIRIZINE [Concomitant]
     Active Substance: CETIRIZINE HYDROCHLORIDE
     Route: 048
  110. CETIRIZINE [Concomitant]
     Active Substance: CETIRIZINE HYDROCHLORIDE
  111. CETIRIZINE [Concomitant]
     Active Substance: CETIRIZINE HYDROCHLORIDE
     Route: 061
  112. CETIRIZINE [Concomitant]
     Active Substance: CETIRIZINE HYDROCHLORIDE
  113. CETIRIZINE [Concomitant]
     Active Substance: CETIRIZINE HYDROCHLORIDE
     Route: 016
  114. CETIRIZINE [Concomitant]
     Active Substance: CETIRIZINE HYDROCHLORIDE
     Route: 016
  115. CETIRIZINE [Concomitant]
     Active Substance: CETIRIZINE HYDROCHLORIDE
     Route: 048
  116. CETIRIZINE [Concomitant]
     Active Substance: CETIRIZINE HYDROCHLORIDE
     Route: 048
  117. CETIRIZINE HYDROCHLORIDE [Concomitant]
     Active Substance: CETIRIZINE HYDROCHLORIDE
     Indication: Rheumatoid arthritis
     Route: 048
  118. CETIRIZINE HYDROCHLORIDE [Concomitant]
     Active Substance: CETIRIZINE HYDROCHLORIDE
     Route: 048
  119. CETIRIZINE HYDROCHLORIDE [Concomitant]
     Active Substance: CETIRIZINE HYDROCHLORIDE
     Route: 048
  120. CETIRIZINE HYDROCHLORIDE [Concomitant]
     Active Substance: CETIRIZINE HYDROCHLORIDE
     Route: 048
  121. CETIRIZINE HYDROCHLORIDE [Concomitant]
     Active Substance: CETIRIZINE HYDROCHLORIDE
  122. CETIRIZINE HYDROCHLORIDE [Concomitant]
     Active Substance: CETIRIZINE HYDROCHLORIDE
  123. CHLORAPREP [Concomitant]
     Active Substance: CHLORHEXIDINE GLUCONATE\ISOPROPYL ALCOHOL
     Indication: Product used for unknown indication
  124. CHLORAPREP [Concomitant]
     Active Substance: CHLORHEXIDINE GLUCONATE\ISOPROPYL ALCOHOL
     Route: 048
  125. CHLORAPREP [Concomitant]
     Active Substance: CHLORHEXIDINE GLUCONATE\ISOPROPYL ALCOHOL
     Route: 061
  126. CHLORAPREP [Concomitant]
     Active Substance: CHLORHEXIDINE GLUCONATE\ISOPROPYL ALCOHOL
  127. CIMZIA [Concomitant]
     Active Substance: CERTOLIZUMAB PEGOL
     Indication: Rheumatoid arthritis
     Route: 058
  128. CIMZIA [Concomitant]
     Active Substance: CERTOLIZUMAB PEGOL
     Indication: Psoriatic arthropathy
     Route: 058
  129. CIMZIA [Concomitant]
     Active Substance: CERTOLIZUMAB PEGOL
     Indication: Psoriasis
     Route: 058
  130. CIMZIA [Concomitant]
     Active Substance: CERTOLIZUMAB PEGOL
     Route: 058
  131. CIMZIA [Concomitant]
     Active Substance: CERTOLIZUMAB PEGOL
  132. CIMZIA [Concomitant]
     Active Substance: CERTOLIZUMAB PEGOL
     Route: 005
  133. CIMZIA [Concomitant]
     Active Substance: CERTOLIZUMAB PEGOL
     Route: 058
  134. CIMZIA [Concomitant]
     Active Substance: CERTOLIZUMAB PEGOL
     Route: 040
  135. CIMZIA [Concomitant]
     Active Substance: CERTOLIZUMAB PEGOL
     Route: 058
  136. CIMZIA [Concomitant]
     Active Substance: CERTOLIZUMAB PEGOL
  137. CODEINE [Concomitant]
     Active Substance: CODEINE
     Indication: Rheumatoid arthritis
  138. CODEINE [Concomitant]
     Active Substance: CODEINE
  139. CORTISONE [Concomitant]
     Active Substance: CORTISONE
     Indication: Rheumatoid arthritis
     Route: 061
  140. CORTISONE [Concomitant]
     Active Substance: CORTISONE
     Route: 061
  141. CORTISONE [Concomitant]
     Active Substance: CORTISONE
     Route: 048
  142. CORTISONE [Concomitant]
     Active Substance: CORTISONE
  143. CORTISONE [Concomitant]
     Active Substance: CORTISONE
  144. CORTISONE [Concomitant]
     Active Substance: CORTISONE
     Route: 048
  145. CORTISONE [Concomitant]
     Active Substance: CORTISONE
  146. CORTISONE [Concomitant]
     Active Substance: CORTISONE
  147. CORTISONE [Concomitant]
     Active Substance: CORTISONE
     Route: 058
  148. CORTISONE [Concomitant]
     Active Substance: CORTISONE
     Route: 048
  149. CORTISONE [Concomitant]
     Active Substance: CORTISONE
     Route: 058
  150. CORTISONE [Concomitant]
     Active Substance: CORTISONE
  151. CORTISONE [Concomitant]
     Active Substance: CORTISONE
  152. CORTISONE [Concomitant]
     Active Substance: CORTISONE
  153. CORTISONE [Concomitant]
     Active Substance: CORTISONE
     Route: 061
  154. CORTISONE [Concomitant]
     Active Substance: CORTISONE
  155. CORTISONE ACETATE [Concomitant]
     Active Substance: CORTISONE ACETATE
     Indication: Rheumatoid arthritis
     Route: 061
  156. CORTISONE ACETATE [Concomitant]
     Active Substance: CORTISONE ACETATE
     Route: 048
  157. CORTISONE ACETATE [Concomitant]
     Active Substance: CORTISONE ACETATE
  158. CORTISONE ACETATE [Concomitant]
     Active Substance: CORTISONE ACETATE
     Route: 048
  159. CORTISONE ACETATE [Concomitant]
     Active Substance: CORTISONE ACETATE
  160. COSENTYX [Concomitant]
     Active Substance: SECUKINUMAB
     Indication: Psoriatic arthropathy
  161. COSENTYX [Concomitant]
     Active Substance: SECUKINUMAB
     Indication: Rheumatoid arthritis
     Route: 005
  162. COSENTYX [Concomitant]
     Active Substance: SECUKINUMAB
     Route: 048
  163. COSENTYX [Concomitant]
     Active Substance: SECUKINUMAB
     Route: 040
  164. DESOGESTREL AND ETHINYL ESTRADIOL [Concomitant]
     Active Substance: DESOGESTREL\ETHINYL ESTRADIOL
     Indication: Product used for unknown indication
  165. DESOGESTREL AND ETHINYL ESTRADIOL [Concomitant]
     Active Substance: DESOGESTREL\ETHINYL ESTRADIOL
  166. DESOXIMETASONE [Concomitant]
     Active Substance: DESOXIMETASONE
     Indication: Rheumatoid arthritis
     Route: 048
  167. DESOXIMETASONE [Concomitant]
     Active Substance: DESOXIMETASONE
     Route: 003
  168. DESOXIMETASONE [Concomitant]
     Active Substance: DESOXIMETASONE
  169. DESOXIMETASONE [Concomitant]
     Active Substance: DESOXIMETASONE
  170. DESOXIMETASONE [Concomitant]
     Active Substance: DESOXIMETASONE
     Route: 003
  171. DESOXIMETASONE [Concomitant]
     Active Substance: DESOXIMETASONE
  172. DESOXIMETASONE [Concomitant]
     Active Substance: DESOXIMETASONE
     Route: 058
  173. DESOXIMETASONE [Concomitant]
     Active Substance: DESOXIMETASONE
     Route: 048
  174. DESOXIMETASONE [Concomitant]
     Active Substance: DESOXIMETASONE
     Route: 016
  175. DESOXIMETASONE [Concomitant]
     Active Substance: DESOXIMETASONE
     Route: 048
  176. DESOXIMETASONE [Concomitant]
     Active Substance: DESOXIMETASONE
  177. DESOXIMETASONE [Concomitant]
     Active Substance: DESOXIMETASONE
     Route: 067
  178. DESOXIMETASONE [Concomitant]
     Active Substance: DESOXIMETASONE
     Route: 067
  179. DESOXIMETASONE [Concomitant]
     Active Substance: DESOXIMETASONE
  180. DESOXIMETASONE [Concomitant]
     Active Substance: DESOXIMETASONE
  181. DESOXIMETASONE [Concomitant]
     Active Substance: DESOXIMETASONE
  182. DESOXIMETASONE [Concomitant]
     Active Substance: DESOXIMETASONE
     Route: 061
  183. DESOXIMETASONE [Concomitant]
     Active Substance: DESOXIMETASONE
     Route: 058
  184. DESOXIMETASONE [Concomitant]
     Active Substance: DESOXIMETASONE
     Route: 061
  185. DESOXIMETASONE [Concomitant]
     Active Substance: DESOXIMETASONE
     Route: 048
  186. DESOXIMETASONE [Concomitant]
     Active Substance: DESOXIMETASONE
  187. DESOXIMETASONE [Concomitant]
     Active Substance: DESOXIMETASONE
  188. DESOXIMETASONE [Concomitant]
     Active Substance: DESOXIMETASONE
  189. DESOXIMETASONE [Concomitant]
     Active Substance: DESOXIMETASONE
  190. DESOXIMETASONE [Concomitant]
     Active Substance: DESOXIMETASONE
     Route: 048
  191. DESOXIMETASONE [Concomitant]
     Active Substance: DESOXIMETASONE
  192. DESOXIMETASONE [Concomitant]
     Active Substance: DESOXIMETASONE
  193. DESOXIMETASONE [Concomitant]
     Active Substance: DESOXIMETASONE
  194. DESOXIMETASONE [Concomitant]
     Active Substance: DESOXIMETASONE
     Route: 067
  195. DESOXIMETASONE [Concomitant]
     Active Substance: DESOXIMETASONE
  196. DESOXIMETASONE [Concomitant]
     Active Substance: DESOXIMETASONE
     Route: 048
  197. DESOXIMETASONE [Concomitant]
     Active Substance: DESOXIMETASONE
  198. DESOXIMETASONE [Concomitant]
     Active Substance: DESOXIMETASONE
  199. DESOXIMETASONE [Concomitant]
     Active Substance: DESOXIMETASONE
  200. DICLOFENAC [Concomitant]
     Active Substance: DICLOFENAC
     Indication: Rheumatoid arthritis
     Route: 047
  201. DICLOFENAC [Concomitant]
     Active Substance: DICLOFENAC
  202. DICLOFENAC [Concomitant]
     Active Substance: DICLOFENAC
  203. DICLOFENAC [Concomitant]
     Active Substance: DICLOFENAC
  204. DICLOFENAC POTASSIUM [Concomitant]
     Active Substance: DICLOFENAC POTASSIUM
     Indication: Rheumatoid arthritis
  205. DICLOFENAC POTASSIUM [Concomitant]
     Active Substance: DICLOFENAC POTASSIUM
     Route: 048
  206. DICLOFENAC POTASSIUM [Concomitant]
     Active Substance: DICLOFENAC POTASSIUM
  207. DICLOFENAC POTASSIUM [Concomitant]
     Active Substance: DICLOFENAC POTASSIUM
     Route: 048
  208. DICLOFENAC POTASSIUM [Concomitant]
     Active Substance: DICLOFENAC POTASSIUM
  209. DICLOFENAC POTASSIUM [Concomitant]
     Active Substance: DICLOFENAC POTASSIUM
     Route: 048
  210. DICLOFENAC POTASSIUM [Concomitant]
     Active Substance: DICLOFENAC POTASSIUM
     Route: 050
  211. DICLOFENAC POTASSIUM [Concomitant]
     Active Substance: DICLOFENAC POTASSIUM
  212. DICLOFENAC SODIUM [Concomitant]
     Active Substance: DICLOFENAC SODIUM
     Indication: Rheumatoid arthritis
  213. DICLOFENAC SODIUM [Concomitant]
     Active Substance: DICLOFENAC SODIUM
     Indication: Osteoarthritis
     Route: 058
  214. DICLOFENAC SODIUM [Concomitant]
     Active Substance: DICLOFENAC SODIUM
     Indication: Inflammation
  215. DICLOFENAC SODIUM [Concomitant]
     Active Substance: DICLOFENAC SODIUM
     Route: 058
  216. DICLOFENAC SODIUM [Concomitant]
     Active Substance: DICLOFENAC SODIUM
  217. DICLOFENAC SODIUM [Concomitant]
     Active Substance: DICLOFENAC SODIUM
  218. DICLOFENAC SODIUM [Concomitant]
     Active Substance: DICLOFENAC SODIUM
  219. DICLOFENAC SODIUM [Concomitant]
     Active Substance: DICLOFENAC SODIUM
  220. DICLOFENAC SODIUM [Concomitant]
     Active Substance: DICLOFENAC SODIUM
  221. DICLOFENAC SODIUM [Concomitant]
     Active Substance: DICLOFENAC SODIUM
  222. DICLOFENAC SODIUM [Concomitant]
     Active Substance: DICLOFENAC SODIUM
  223. DICLOFENAC SODIUM [Concomitant]
     Active Substance: DICLOFENAC SODIUM
  224. DICLOFENAC SODIUM [Concomitant]
     Active Substance: DICLOFENAC SODIUM
  225. DICLOFENAC SODIUM [Concomitant]
     Active Substance: DICLOFENAC SODIUM
     Route: 048
  226. DICLOFENAC SODIUM [Concomitant]
     Active Substance: DICLOFENAC SODIUM
  227. DICLOFENAC SODIUM [Concomitant]
     Active Substance: DICLOFENAC SODIUM
     Route: 058
  228. DOXYCYCLINE [Concomitant]
     Active Substance: DOXYCYCLINE
     Indication: Product used for unknown indication
  229. DOXYCYCLINE [Concomitant]
     Active Substance: DOXYCYCLINE
  230. ENBREL [Concomitant]
     Active Substance: ETANERCEPT
     Indication: Rheumatoid arthritis
     Route: 058
  231. ENBREL [Concomitant]
     Active Substance: ETANERCEPT
     Indication: Psoriatic arthropathy
     Route: 058
  232. ENBREL [Concomitant]
     Active Substance: ETANERCEPT
     Route: 058
  233. ENBREL [Concomitant]
     Active Substance: ETANERCEPT
     Route: 058
  234. ENBREL [Concomitant]
     Active Substance: ETANERCEPT
     Route: 061
  235. ENBREL [Concomitant]
     Active Substance: ETANERCEPT
  236. ENBREL [Concomitant]
     Active Substance: ETANERCEPT
     Route: 058
  237. ENBREL [Concomitant]
     Active Substance: ETANERCEPT
     Route: 058
  238. ENBREL [Concomitant]
     Active Substance: ETANERCEPT
     Route: 058
  239. ENBREL [Concomitant]
     Active Substance: ETANERCEPT
     Route: 058
  240. ENBREL [Concomitant]
     Active Substance: ETANERCEPT
     Route: 058
  241. ENBREL [Concomitant]
     Active Substance: ETANERCEPT
     Route: 048
  242. ENBREL [Concomitant]
     Active Substance: ETANERCEPT
  243. ENBREL [Concomitant]
     Active Substance: ETANERCEPT
  244. ENBREL [Concomitant]
     Active Substance: ETANERCEPT
     Route: 058
  245. ERELZI [Concomitant]
     Active Substance: ETANERCEPT-SZZS
     Indication: Rheumatoid arthritis
     Route: 058
  246. ERELZI [Concomitant]
     Active Substance: ETANERCEPT-SZZS
  247. ERELZI [Concomitant]
     Active Substance: ETANERCEPT-SZZS
     Route: 058
  248. ERELZI [Concomitant]
     Active Substance: ETANERCEPT-SZZS
     Route: 058
  249. ERELZI [Concomitant]
     Active Substance: ETANERCEPT-SZZS
     Route: 058
  250. ERELZI [Concomitant]
     Active Substance: ETANERCEPT-SZZS
     Route: 058
  251. ERELZI [Concomitant]
     Active Substance: ETANERCEPT-SZZS
  252. ERGOCALCIFEROL [Concomitant]
     Active Substance: ERGOCALCIFEROL
     Indication: Rheumatoid arthritis
  253. ERGOCALCIFEROL [Concomitant]
     Active Substance: ERGOCALCIFEROL
  254. FOLIC ACID [Concomitant]
     Active Substance: FOLIC ACID
     Indication: Rheumatoid arthritis
  255. FOLIC ACID [Concomitant]
     Active Substance: FOLIC ACID
  256. FOLIC ACID [Concomitant]
     Active Substance: FOLIC ACID
     Route: 058
  257. FOLIC ACID [Concomitant]
     Active Substance: FOLIC ACID
  258. FOLIC ACID [Concomitant]
     Active Substance: FOLIC ACID
     Route: 048
  259. FOLIC ACID [Concomitant]
     Active Substance: FOLIC ACID
  260. FOLIC ACID [Concomitant]
     Active Substance: FOLIC ACID
  261. FOLIC ACID [Concomitant]
     Active Substance: FOLIC ACID
  262. FOLIC ACID [Concomitant]
     Active Substance: FOLIC ACID
     Route: 048
  263. FOLIC ACID [Concomitant]
     Active Substance: FOLIC ACID
  264. FOLIC ACID [Concomitant]
     Active Substance: FOLIC ACID
     Route: 058
  265. FOLIC ACID [Concomitant]
     Active Substance: FOLIC ACID
  266. FOLIC ACID [Concomitant]
     Active Substance: FOLIC ACID
     Route: 016
  267. FOLIC ACID [Concomitant]
     Active Substance: FOLIC ACID
     Route: 048
  268. FOLIC ACID [Concomitant]
     Active Substance: FOLIC ACID
     Route: 048
  269. FOLIC ACID [Concomitant]
     Active Substance: FOLIC ACID
     Route: 058
  270. FOLIC ACID [Concomitant]
     Active Substance: FOLIC ACID
  271. FOLIC ACID [Concomitant]
     Active Substance: FOLIC ACID
  272. FOLIC ACID [Concomitant]
     Active Substance: FOLIC ACID
     Route: 058
  273. FOLIC ACID [Concomitant]
     Active Substance: FOLIC ACID
     Route: 058
  274. FOLIC ACID [Concomitant]
     Active Substance: FOLIC ACID
     Route: 048
  275. FOLIC ACID [Concomitant]
     Active Substance: FOLIC ACID
     Route: 048
  276. FOLIC ACID [Concomitant]
     Active Substance: FOLIC ACID
     Route: 048
  277. FOSAMAX [Concomitant]
     Active Substance: ALENDRONATE SODIUM
     Indication: Rheumatoid arthritis
     Route: 048
  278. FOSAMAX [Concomitant]
     Active Substance: ALENDRONATE SODIUM
     Route: 048
  279. FOSAMAX [Concomitant]
     Active Substance: ALENDRONATE SODIUM
     Route: 016
  280. FOSAMAX [Concomitant]
     Active Substance: ALENDRONATE SODIUM
     Route: 058
  281. FOSAMAX [Concomitant]
     Active Substance: ALENDRONATE SODIUM
     Route: 048
  282. FOSAMAX [Concomitant]
     Active Substance: ALENDRONATE SODIUM
     Route: 048
  283. FOSAMAX [Concomitant]
     Active Substance: ALENDRONATE SODIUM
  284. FOSAMAX [Concomitant]
     Active Substance: ALENDRONATE SODIUM
     Route: 005
  285. FOSAMAX [Concomitant]
     Active Substance: ALENDRONATE SODIUM
  286. FOSAMAX [Concomitant]
     Active Substance: ALENDRONATE SODIUM
     Route: 048
  287. FOSAMAX [Concomitant]
     Active Substance: ALENDRONATE SODIUM
     Route: 005
  288. FOSAMAX [Concomitant]
     Active Substance: ALENDRONATE SODIUM
     Route: 048
  289. GLUCOSAMINE [Concomitant]
     Active Substance: GLUCOSAMINE
     Indication: Rheumatoid arthritis
  290. GLUCOSAMINE [Concomitant]
     Active Substance: GLUCOSAMINE
     Route: 048
  291. HUMIRA [Concomitant]
     Active Substance: ADALIMUMAB
     Indication: Rheumatoid arthritis
     Route: 058
  292. HUMIRA [Concomitant]
     Active Substance: ADALIMUMAB
     Indication: Psoriatic arthropathy
     Route: 058
  293. HUMIRA [Concomitant]
     Active Substance: ADALIMUMAB
  294. HUMIRA [Concomitant]
     Active Substance: ADALIMUMAB
     Route: 058
  295. HUMIRA [Concomitant]
     Active Substance: ADALIMUMAB
     Route: 058
  296. HUMIRA [Concomitant]
     Active Substance: ADALIMUMAB
     Route: 058
  297. HUMIRA [Concomitant]
     Active Substance: ADALIMUMAB
     Route: 058
  298. HUMIRA [Concomitant]
     Active Substance: ADALIMUMAB
  299. HYDROCORTISONE PROBUTATE [Concomitant]
     Active Substance: HYDROCORTISONE PROBUTATE
     Indication: Rheumatoid arthritis
  300. HYDROXYCHLOROQUINE [Concomitant]
     Active Substance: HYDROXYCHLOROQUINE
     Indication: Rheumatoid arthritis
     Route: 048
  301. HYDROXYCHLOROQUINE [Concomitant]
     Active Substance: HYDROXYCHLOROQUINE
     Indication: Systemic lupus erythematosus
  302. HYDROXYCHLOROQUINE [Concomitant]
     Active Substance: HYDROXYCHLOROQUINE
     Dosage: 40
     Route: 066
  303. HYDROXYCHLOROQUINE [Concomitant]
     Active Substance: HYDROXYCHLOROQUINE
     Route: 005
  304. HYDROXYCHLOROQUINE [Concomitant]
     Active Substance: HYDROXYCHLOROQUINE
     Route: 058
  305. HYDROXYCHLOROQUINE [Concomitant]
     Active Substance: HYDROXYCHLOROQUINE
  306. HYDROXYCHLOROQUINE [Concomitant]
     Active Substance: HYDROXYCHLOROQUINE
  307. HYDROXYCHLOROQUINE [Concomitant]
     Active Substance: HYDROXYCHLOROQUINE
     Route: 048
  308. HYDROXYCHLOROQUINE [Concomitant]
     Active Substance: HYDROXYCHLOROQUINE
  309. HYDROXYCHLOROQUINE [Concomitant]
     Active Substance: HYDROXYCHLOROQUINE
     Route: 048
  310. HYDROXYCHLOROQUINE [Concomitant]
     Active Substance: HYDROXYCHLOROQUINE
     Route: 048
  311. HYDROXYCHLOROQUINE [Concomitant]
     Active Substance: HYDROXYCHLOROQUINE
  312. HYDROXYCHLOROQUINE [Concomitant]
     Active Substance: HYDROXYCHLOROQUINE
     Route: 066
  313. HYDROXYCHLOROQUINE [Concomitant]
     Active Substance: HYDROXYCHLOROQUINE
  314. HYDROXYCHLOROQUINE [Concomitant]
     Active Substance: HYDROXYCHLOROQUINE
     Route: 048
  315. HYDROXYCHLOROQUINE [Concomitant]
     Active Substance: HYDROXYCHLOROQUINE
     Route: 066
  316. HYDROXYCHLOROQUINE [Concomitant]
     Active Substance: HYDROXYCHLOROQUINE
  317. HYDROXYCHLOROQUINE SULFATE [Concomitant]
     Active Substance: HYDROXYCHLOROQUINE SULFATE
     Indication: Rheumatoid arthritis
  318. HYDROXYCHLOROQUINE SULFATE [Concomitant]
     Active Substance: HYDROXYCHLOROQUINE SULFATE
     Indication: Systemic lupus erythematosus
  319. HYDROXYCHLOROQUINE SULFATE [Concomitant]
     Active Substance: HYDROXYCHLOROQUINE SULFATE
     Route: 058
  320. HYDROXYCHLOROQUINE SULFATE [Concomitant]
     Active Substance: HYDROXYCHLOROQUINE SULFATE
     Route: 048
  321. HYDROXYCHLOROQUINE SULFATE [Concomitant]
     Active Substance: HYDROXYCHLOROQUINE SULFATE
     Route: 048
  322. HYDROXYCHLOROQUINE SULFATE [Concomitant]
     Active Substance: HYDROXYCHLOROQUINE SULFATE
     Route: 066
  323. HYDROXYCHLOROQUINE SULFATE [Concomitant]
     Active Substance: HYDROXYCHLOROQUINE SULFATE
  324. HYDROXYCHLOROQUINE SULFATE [Concomitant]
     Active Substance: HYDROXYCHLOROQUINE SULFATE
  325. HYDROXYCHLOROQUINE SULFATE [Concomitant]
     Active Substance: HYDROXYCHLOROQUINE SULFATE
     Route: 016
  326. HYDROXYCHLOROQUINE SULFATE [Concomitant]
     Active Substance: HYDROXYCHLOROQUINE SULFATE
     Route: 048
  327. HYDROXYCHLOROQUINE SULFATE [Concomitant]
     Active Substance: HYDROXYCHLOROQUINE SULFATE
  328. HYDROXYCHLOROQUINE SULFATE [Concomitant]
     Active Substance: HYDROXYCHLOROQUINE SULFATE
     Route: 048
  329. HYDROXYCHLOROQUINE SULFATE [Concomitant]
     Active Substance: HYDROXYCHLOROQUINE SULFATE
  330. HYDROXYCHLOROQUINE SULFATE [Concomitant]
     Active Substance: HYDROXYCHLOROQUINE SULFATE
  331. HYDROXYCHLOROQUINE SULFATE [Concomitant]
     Active Substance: HYDROXYCHLOROQUINE SULFATE
     Route: 066
  332. HYDROXYCHLOROQUINE SULFATE [Concomitant]
     Active Substance: HYDROXYCHLOROQUINE SULFATE
     Route: 048
  333. HYDROXYCHLOROQUINE SULFATE [Concomitant]
     Active Substance: HYDROXYCHLOROQUINE SULFATE
  334. HYDROXYCHLOROQUINE SULFATE [Concomitant]
     Active Substance: HYDROXYCHLOROQUINE SULFATE
  335. IBUPROFEN [Concomitant]
     Active Substance: IBUPROFEN
     Indication: Product used for unknown indication
  336. IBUPROFEN [Concomitant]
     Active Substance: IBUPROFEN
  337. INFLIXIMAB [Concomitant]
     Active Substance: INFLIXIMAB
     Indication: Rheumatoid arthritis
     Route: 042
  338. INFLIXIMAB [Concomitant]
     Active Substance: INFLIXIMAB
     Indication: Psoriatic arthropathy
     Route: 040
  339. INFLIXIMAB [Concomitant]
     Active Substance: INFLIXIMAB
     Indication: Colitis ulcerative
     Route: 040
  340. INFLIXIMAB [Concomitant]
     Active Substance: INFLIXIMAB
     Route: 040
  341. INFLIXIMAB [Concomitant]
     Active Substance: INFLIXIMAB
  342. KEVZARA [Concomitant]
     Active Substance: SARILUMAB
     Indication: Rheumatoid arthritis
  343. KEVZARA [Concomitant]
     Active Substance: SARILUMAB
     Route: 016
  344. KEVZARA [Concomitant]
     Active Substance: SARILUMAB
  345. LEFLUNOMIDE [Concomitant]
     Active Substance: LEFLUNOMIDE
     Indication: Rheumatoid arthritis
     Route: 048
  346. LEFLUNOMIDE [Concomitant]
     Active Substance: LEFLUNOMIDE
  347. LEFLUNOMIDE [Concomitant]
     Active Substance: LEFLUNOMIDE
     Route: 048
  348. LEFLUNOMIDE [Concomitant]
     Active Substance: LEFLUNOMIDE
  349. LEFLUNOMIDE [Concomitant]
     Active Substance: LEFLUNOMIDE
     Route: 048
  350. LEFLUNOMIDE [Concomitant]
     Active Substance: LEFLUNOMIDE
  351. LEFLUNOMIDE [Concomitant]
     Active Substance: LEFLUNOMIDE
  352. LEFLUNOMIDE [Concomitant]
     Active Substance: LEFLUNOMIDE
     Route: 048
  353. LEFLUNOMIDE [Concomitant]
     Active Substance: LEFLUNOMIDE
     Route: 048
  354. LEFLUNOMIDE [Concomitant]
     Active Substance: LEFLUNOMIDE
     Route: 048
  355. LEFLUNOMIDE [Concomitant]
     Active Substance: LEFLUNOMIDE
  356. LANSOPRAZOLE [Concomitant]
     Active Substance: LANSOPRAZOLE
     Indication: Rheumatoid arthritis
     Route: 048
  357. LANSOPRAZOLE [Concomitant]
     Active Substance: LANSOPRAZOLE
  358. LEVOTHYROXINE SODIUM [Concomitant]
     Active Substance: LEVOTHYROXINE SODIUM
     Indication: Product used for unknown indication
  359. LEVOTHYROXINE SODIUM [Concomitant]
     Active Substance: LEVOTHYROXINE SODIUM
  360. LISINOPRIL [Concomitant]
     Active Substance: LISINOPRIL
     Indication: Product used for unknown indication
  361. LISINOPRIL [Concomitant]
     Active Substance: LISINOPRIL
  362. FLUMETHASONE PIVALATE [Concomitant]
     Active Substance: FLUMETHASONE PIVALATE
     Indication: Rheumatoid arthritis
     Route: 058
  363. FLUMETHASONE PIVALATE [Concomitant]
     Active Substance: FLUMETHASONE PIVALATE
  364. FLUMETHASONE PIVALATE [Concomitant]
     Active Substance: FLUMETHASONE PIVALATE
     Route: 058
  365. FLUMETHASONE PIVALATE [Concomitant]
     Active Substance: FLUMETHASONE PIVALATE
     Route: 003
  366. LYRICA [Concomitant]
     Active Substance: PREGABALIN
     Indication: Fibromyalgia
  367. LYRICA [Concomitant]
     Active Substance: PREGABALIN
     Route: 048
  368. MAGNESIUM CARBONATE [Concomitant]
     Active Substance: MAGNESIUM CARBONATE
     Indication: Product used for unknown indication
  369. MAGNESIUM CARBONATE [Concomitant]
     Active Substance: MAGNESIUM CARBONATE
     Route: 048
  370. MELOXICAM [Concomitant]
     Active Substance: MELOXICAM
     Indication: Product used for unknown indication
  371. MELOXICAM [Concomitant]
     Active Substance: MELOXICAM
  372. MELOXICAM [Concomitant]
     Active Substance: MELOXICAM
     Route: 048
  373. MELOXICAM [Concomitant]
     Active Substance: MELOXICAM
     Route: 048
  374. METHOTREXATE [Concomitant]
     Active Substance: METHOTREXATE
     Indication: Rheumatoid arthritis
     Route: 048
  375. METHOTREXATE [Concomitant]
     Active Substance: METHOTREXATE
  376. METHOTREXATE [Concomitant]
     Active Substance: METHOTREXATE
     Route: 058
  377. METHOTREXATE [Concomitant]
     Active Substance: METHOTREXATE
     Route: 013
  378. METHOTREXATE [Concomitant]
     Active Substance: METHOTREXATE
     Dosage: 20
     Route: 048
  379. METHOTREXATE [Concomitant]
     Active Substance: METHOTREXATE
     Route: 048
  380. METHOTREXATE [Concomitant]
     Active Substance: METHOTREXATE
     Route: 048
  381. METHOTREXATE [Concomitant]
     Active Substance: METHOTREXATE
     Route: 048
  382. METHOTREXATE [Concomitant]
     Active Substance: METHOTREXATE
     Route: 048
  383. METHOTREXATE [Concomitant]
     Active Substance: METHOTREXATE
     Route: 013
  384. METHOTREXATE [Concomitant]
     Active Substance: METHOTREXATE
  385. METHOTREXATE [Concomitant]
     Active Substance: METHOTREXATE
     Route: 058
  386. METHOTREXATE [Concomitant]
     Active Substance: METHOTREXATE
     Route: 048
  387. METHOTREXATE [Concomitant]
     Active Substance: METHOTREXATE
     Route: 048
  388. METHOTREXATE [Concomitant]
     Active Substance: METHOTREXATE
     Route: 058
  389. METHOTREXATE [Concomitant]
     Active Substance: METHOTREXATE
  390. METHOTREXATE [Concomitant]
     Active Substance: METHOTREXATE
     Route: 048
  391. METHOTREXATE [Concomitant]
     Active Substance: METHOTREXATE
     Route: 016
  392. METHOTREXATE [Concomitant]
     Active Substance: METHOTREXATE
  393. METHOTREXATE [Concomitant]
     Active Substance: METHOTREXATE
     Route: 013
  394. METHOTREXATE [Concomitant]
     Active Substance: METHOTREXATE
     Route: 048
  395. METHOTREXATE [Concomitant]
     Active Substance: METHOTREXATE
     Route: 048
  396. METHOTREXATE SODIUM [Concomitant]
     Active Substance: METHOTREXATE SODIUM
     Indication: Rheumatoid arthritis
  397. METHOTREXATE SODIUM [Concomitant]
     Active Substance: METHOTREXATE SODIUM
     Route: 058
  398. METHOTREXATE SODIUM [Concomitant]
     Active Substance: METHOTREXATE SODIUM
  399. METHOTREXATE SODIUM [Concomitant]
     Active Substance: METHOTREXATE SODIUM
     Route: 048
  400. METHOTREXATE SODIUM [Concomitant]
     Active Substance: METHOTREXATE SODIUM
     Route: 048
  401. METHOTREXATE SODIUM [Concomitant]
     Active Substance: METHOTREXATE SODIUM
     Route: 048
  402. METHOTREXATE SODIUM [Concomitant]
     Active Substance: METHOTREXATE SODIUM
     Route: 048
  403. METHOTREXATE SODIUM [Concomitant]
     Active Substance: METHOTREXATE SODIUM
     Route: 048
  404. METHOTREXATE SODIUM [Concomitant]
     Active Substance: METHOTREXATE SODIUM
     Route: 048
  405. METHOTREXATE SODIUM [Concomitant]
     Active Substance: METHOTREXATE SODIUM
     Route: 048
  406. METHOTREXATE SODIUM [Concomitant]
     Active Substance: METHOTREXATE SODIUM
  407. METHOTREXATE SODIUM [Concomitant]
     Active Substance: METHOTREXATE SODIUM
  408. METHOTREXATE SODIUM [Concomitant]
     Active Substance: METHOTREXATE SODIUM
     Route: 048
  409. METHOTREXATE SODIUM [Concomitant]
     Active Substance: METHOTREXATE SODIUM
  410. METHOTREXATE SODIUM [Concomitant]
     Active Substance: METHOTREXATE SODIUM
     Route: 048
  411. METHOTREXATE SODIUM [Concomitant]
     Active Substance: METHOTREXATE SODIUM
  412. METHOTREXATE SODIUM [Concomitant]
     Active Substance: METHOTREXATE SODIUM
     Route: 048
  413. METHOTREXATE SODIUM [Concomitant]
     Active Substance: METHOTREXATE SODIUM
     Route: 058
  414. METHOTREXATE SODIUM [Concomitant]
     Active Substance: METHOTREXATE SODIUM
     Route: 048
  415. METHOTREXATE SODIUM [Concomitant]
     Active Substance: METHOTREXATE SODIUM
     Route: 048
  416. METHOTREXATE SODIUM [Concomitant]
     Active Substance: METHOTREXATE SODIUM
  417. METHOTREXATE SODIUM [Concomitant]
     Active Substance: METHOTREXATE SODIUM
  418. METHOTREXATE SODIUM [Concomitant]
     Active Substance: METHOTREXATE SODIUM
     Route: 048
  419. METHOTREXATE SODIUM [Concomitant]
     Active Substance: METHOTREXATE SODIUM
  420. METHOTREXATE SODIUM [Concomitant]
     Active Substance: METHOTREXATE SODIUM
     Route: 013
  421. METHOTREXATE SODIUM [Concomitant]
     Active Substance: METHOTREXATE SODIUM
     Route: 013
  422. METHOTREXATE SODIUM [Concomitant]
     Active Substance: METHOTREXATE SODIUM
     Route: 048
  423. METHOTREXATE SODIUM [Concomitant]
     Active Substance: METHOTREXATE SODIUM
  424. METHOTREXATE SODIUM [Concomitant]
     Active Substance: METHOTREXATE SODIUM
  425. METHOTREXATE SODIUM [Concomitant]
     Active Substance: METHOTREXATE SODIUM
     Route: 058
  426. METHOTREXATE SODIUM [Concomitant]
     Active Substance: METHOTREXATE SODIUM
     Route: 048
  427. METHOTREXATE SODIUM [Concomitant]
     Active Substance: METHOTREXATE SODIUM
     Route: 048
  428. METHOTREXATE SODIUM [Concomitant]
     Active Substance: METHOTREXATE SODIUM
     Route: 048
  429. METHOTREXATE SODIUM [Concomitant]
     Active Substance: METHOTREXATE SODIUM
  430. METHOTREXATE SODIUM [Concomitant]
     Active Substance: METHOTREXATE SODIUM
     Route: 048
  431. METHOTREXATE SODIUM [Concomitant]
     Active Substance: METHOTREXATE SODIUM
  432. METHOTREXATE SODIUM [Concomitant]
     Active Substance: METHOTREXATE SODIUM
     Route: 048
  433. METHOTREXATE SODIUM [Concomitant]
     Active Substance: METHOTREXATE SODIUM
  434. METHOTREXATE SODIUM [Concomitant]
     Active Substance: METHOTREXATE SODIUM
     Route: 048
  435. METHOTREXATE SODIUM [Concomitant]
     Active Substance: METHOTREXATE SODIUM
     Route: 040
  436. METHOTREXATE SODIUM [Concomitant]
     Active Substance: METHOTREXATE SODIUM
     Route: 048
  437. METHOTREXATE SODIUM [Concomitant]
     Active Substance: METHOTREXATE SODIUM
     Route: 013
  438. METHOTREXATE SODIUM [Concomitant]
     Active Substance: METHOTREXATE SODIUM
     Route: 048
  439. METHOTREXATE SODIUM [Concomitant]
     Active Substance: METHOTREXATE SODIUM
     Route: 048
  440. METHOTREXATE SODIUM [Concomitant]
     Active Substance: METHOTREXATE SODIUM
  441. MYCOPHENOLATE MOFETIL [Concomitant]
     Active Substance: MYCOPHENOLATE MOFETIL
     Indication: Rheumatoid arthritis
  442. MYCOPHENOLATE MOFETIL [Concomitant]
     Active Substance: MYCOPHENOLATE MOFETIL
  443. NAPROXEN SODIUM [Concomitant]
     Active Substance: NAPROXEN SODIUM
     Indication: Rheumatoid arthritis
  444. NAPROXEN SODIUM [Concomitant]
     Active Substance: NAPROXEN SODIUM
     Indication: Headache
  445. NAPROXEN SODIUM [Concomitant]
     Active Substance: NAPROXEN SODIUM
  446. NAPROXEN SODIUM [Concomitant]
     Active Substance: NAPROXEN SODIUM
  447. NAPROXEN SODIUM [Concomitant]
     Active Substance: NAPROXEN SODIUM
  448. NEOMYCIN [Concomitant]
     Active Substance: NEOMYCIN
     Indication: Product used for unknown indication
  449. OTEZLA [Concomitant]
     Active Substance: APREMILAST
     Indication: Rheumatoid arthritis
     Route: 048
  450. OTEZLA [Concomitant]
     Active Substance: APREMILAST
     Indication: Psoriasis
     Route: 048
  451. OTEZLA [Concomitant]
     Active Substance: APREMILAST
  452. OTEZLA [Concomitant]
     Active Substance: APREMILAST
     Route: 048
  453. OTEZLA [Concomitant]
     Active Substance: APREMILAST
     Route: 048
  454. OTEZLA [Concomitant]
     Active Substance: APREMILAST
     Route: 048
  455. OTEZLA [Concomitant]
     Active Substance: APREMILAST
  456. OTEZLA [Concomitant]
     Active Substance: APREMILAST
  457. OXYCODONE [Concomitant]
     Active Substance: OXYCODONE
     Indication: Product used for unknown indication
  458. OXYCODONE [Concomitant]
     Active Substance: OXYCODONE
  459. OXYCODONE TEREPHTHALATE [Concomitant]
     Active Substance: OXYCODONE TEREPHTHALATE
     Indication: Product used for unknown indication
  460. OXYCODONE TEREPHTHALATE [Concomitant]
     Active Substance: OXYCODONE TEREPHTHALATE
  461. PANTOPRAZOLE SODIUM [Concomitant]
     Active Substance: PANTOPRAZOLE SODIUM
     Indication: Product used for unknown indication
  462. PANTOPRAZOLE SODIUM [Concomitant]
     Active Substance: PANTOPRAZOLE SODIUM
  463. PERIOGARD [Concomitant]
     Active Substance: CHLORHEXIDINE GLUCONATE
     Indication: Rheumatoid arthritis
     Route: 002
  464. PERIOGARD [Concomitant]
     Active Substance: CHLORHEXIDINE GLUCONATE
     Route: 002
  465. PHTHALYLSULFATHIAZOLE [Concomitant]
     Active Substance: PHTHALYLSULFATHIAZOLE
     Indication: Rheumatoid arthritis
     Route: 016
  466. PHTHALYLSULFATHIAZOLE [Concomitant]
     Active Substance: PHTHALYLSULFATHIAZOLE
     Route: 048
  467. PHTHALYLSULFATHIAZOLE [Concomitant]
     Active Substance: PHTHALYLSULFATHIAZOLE
  468. PHTHALYLSULFATHIAZOLE [Concomitant]
     Active Substance: PHTHALYLSULFATHIAZOLE
     Route: 042
  469. PHTHALYLSULFATHIAZOLE [Concomitant]
     Active Substance: PHTHALYLSULFATHIAZOLE
  470. PHTHALYLSULFATHIAZOLE [Concomitant]
     Active Substance: PHTHALYLSULFATHIAZOLE
     Route: 016
  471. PHTHALYLSULFATHIAZOLE [Concomitant]
     Active Substance: PHTHALYLSULFATHIAZOLE
     Route: 048
  472. PHTHALYLSULFATHIAZOLE [Concomitant]
     Active Substance: PHTHALYLSULFATHIAZOLE
     Route: 058
  473. PHTHALYLSULFATHIAZOLE [Concomitant]
     Active Substance: PHTHALYLSULFATHIAZOLE
     Route: 048
  474. PHTHALYLSULFATHIAZOLE [Concomitant]
     Active Substance: PHTHALYLSULFATHIAZOLE
  475. PHTHALYLSULFATHIAZOLE [Concomitant]
     Active Substance: PHTHALYLSULFATHIAZOLE
     Route: 042
  476. PIROXICAM [Concomitant]
     Active Substance: PIROXICAM
     Indication: Product used for unknown indication
  477. PIROXICAM [Concomitant]
     Active Substance: PIROXICAM
  478. PLAQUENIL [Concomitant]
     Active Substance: HYDROXYCHLOROQUINE SULFATE
     Indication: Rheumatoid arthritis
  479. PLAQUENIL [Concomitant]
     Active Substance: HYDROXYCHLOROQUINE SULFATE
  480. PLAQUENIL [Concomitant]
     Active Substance: HYDROXYCHLOROQUINE SULFATE
  481. PLAQUENIL [Concomitant]
     Active Substance: HYDROXYCHLOROQUINE SULFATE
     Route: 048
  482. PLAQUENIL [Concomitant]
     Active Substance: HYDROXYCHLOROQUINE SULFATE
  483. PLAQUENIL [Concomitant]
     Active Substance: HYDROXYCHLOROQUINE SULFATE
  484. PLAQUENIL [Concomitant]
     Active Substance: HYDROXYCHLOROQUINE SULFATE
  485. PLAQUENIL [Concomitant]
     Active Substance: HYDROXYCHLOROQUINE SULFATE
     Route: 048
  486. PLAQUENIL [Concomitant]
     Active Substance: HYDROXYCHLOROQUINE SULFATE
     Route: 048
  487. PLAQUENIL [Concomitant]
     Active Substance: HYDROXYCHLOROQUINE SULFATE
     Route: 048
  488. PLAQUENIL [Concomitant]
     Active Substance: HYDROXYCHLOROQUINE SULFATE
     Route: 048
  489. PREDNISOLONE [Concomitant]
     Active Substance: PREDNISOLONE
     Indication: Rheumatoid arthritis
     Route: 048
  490. PREDNISOLONE [Concomitant]
     Active Substance: PREDNISOLONE
     Indication: Psoriatic arthropathy
     Route: 042
  491. PREDNISOLONE [Concomitant]
     Active Substance: PREDNISOLONE
     Indication: Condition aggravated
     Route: 048
  492. PREDNISOLONE [Concomitant]
     Active Substance: PREDNISOLONE
  493. PREDNISOLONE [Concomitant]
     Active Substance: PREDNISOLONE
     Route: 048
  494. PREDNISOLONE [Concomitant]
     Active Substance: PREDNISOLONE
     Route: 048
  495. PREDNISOLONE [Concomitant]
     Active Substance: PREDNISOLONE
     Route: 016
  496. PREDNISOLONE [Concomitant]
     Active Substance: PREDNISOLONE
  497. PREDNISOLONE [Concomitant]
     Active Substance: PREDNISOLONE
     Route: 058
  498. PREDNISOLONE [Concomitant]
     Active Substance: PREDNISOLONE
     Route: 048
  499. PSEUDOEPHEDRINE HYDROCHLORIDE [Concomitant]
     Active Substance: PSEUDOEPHEDRINE HYDROCHLORIDE
     Indication: Rheumatoid arthritis
  500. PSEUDOEPHEDRINE HYDROCHLORIDE [Concomitant]
     Active Substance: PSEUDOEPHEDRINE HYDROCHLORIDE
  501. QUETIAPINE [Concomitant]
     Active Substance: QUETIAPINE
     Indication: Rheumatoid arthritis
  502. QUETIAPINE [Concomitant]
     Active Substance: QUETIAPINE
     Route: 048
  503. QUETIAPINE [Concomitant]
     Active Substance: QUETIAPINE
  504. QUETIAPINE [Concomitant]
     Active Substance: QUETIAPINE
     Route: 003
  505. RAMIPRIL [Concomitant]
     Active Substance: RAMIPRIL
     Indication: Product used for unknown indication
  506. RAMIPRIL [Concomitant]
     Active Substance: RAMIPRIL
     Route: 016
  507. RAMIPRIL [Concomitant]
     Active Substance: RAMIPRIL
  508. CETIRIZINE HYDROCHLORIDE [Concomitant]
     Active Substance: CETIRIZINE HYDROCHLORIDE
     Indication: Rheumatoid arthritis
  509. CETIRIZINE HYDROCHLORIDE [Concomitant]
     Active Substance: CETIRIZINE HYDROCHLORIDE
     Indication: Urticaria
     Route: 048
  510. CETIRIZINE HYDROCHLORIDE [Concomitant]
     Active Substance: CETIRIZINE HYDROCHLORIDE
  511. CETIRIZINE HYDROCHLORIDE [Concomitant]
     Active Substance: CETIRIZINE HYDROCHLORIDE
  512. CETIRIZINE HYDROCHLORIDE [Concomitant]
     Active Substance: CETIRIZINE HYDROCHLORIDE
     Route: 048
  513. CETIRIZINE HYDROCHLORIDE [Concomitant]
     Active Substance: CETIRIZINE HYDROCHLORIDE
  514. CETIRIZINE HYDROCHLORIDE [Concomitant]
     Active Substance: CETIRIZINE HYDROCHLORIDE
     Route: 048
  515. CETIRIZINE HYDROCHLORIDE [Concomitant]
     Active Substance: CETIRIZINE HYDROCHLORIDE
  516. CETIRIZINE HYDROCHLORIDE [Concomitant]
     Active Substance: CETIRIZINE HYDROCHLORIDE
     Route: 040
  517. CETIRIZINE HYDROCHLORIDE [Concomitant]
     Active Substance: CETIRIZINE HYDROCHLORIDE
     Route: 048
  518. CETIRIZINE HYDROCHLORIDE [Concomitant]
     Active Substance: CETIRIZINE HYDROCHLORIDE
     Route: 016
  519. CETIRIZINE HYDROCHLORIDE\PSEUDOEPHEDRINE HYDROCHLORIDE [Concomitant]
     Active Substance: CETIRIZINE HYDROCHLORIDE\PSEUDOEPHEDRINE HYDROCHLORIDE
     Indication: Rheumatoid arthritis
  520. CETIRIZINE HYDROCHLORIDE\PSEUDOEPHEDRINE HYDROCHLORIDE [Concomitant]
     Active Substance: CETIRIZINE HYDROCHLORIDE\PSEUDOEPHEDRINE HYDROCHLORIDE
  521. CETIRIZINE HYDROCHLORIDE\PSEUDOEPHEDRINE HYDROCHLORIDE [Concomitant]
     Active Substance: CETIRIZINE HYDROCHLORIDE\PSEUDOEPHEDRINE HYDROCHLORIDE
  522. CETIRIZINE HYDROCHLORIDE\PSEUDOEPHEDRINE HYDROCHLORIDE [Concomitant]
     Active Substance: CETIRIZINE HYDROCHLORIDE\PSEUDOEPHEDRINE HYDROCHLORIDE
     Route: 048
  523. CETIRIZINE HYDROCHLORIDE\PSEUDOEPHEDRINE HYDROCHLORIDE [Concomitant]
     Active Substance: CETIRIZINE HYDROCHLORIDE\PSEUDOEPHEDRINE HYDROCHLORIDE
     Indication: Rheumatoid arthritis
     Route: 048
  524. CETIRIZINE HYDROCHLORIDE\PSEUDOEPHEDRINE HYDROCHLORIDE [Concomitant]
     Active Substance: CETIRIZINE HYDROCHLORIDE\PSEUDOEPHEDRINE HYDROCHLORIDE
  525. CETIRIZINE HYDROCHLORIDE\PSEUDOEPHEDRINE HYDROCHLORIDE [Concomitant]
     Active Substance: CETIRIZINE HYDROCHLORIDE\PSEUDOEPHEDRINE HYDROCHLORIDE
     Dosage: TABLET (EXTENDED-RELEASE)
     Route: 048
  526. CETIRIZINE HYDROCHLORIDE\PSEUDOEPHEDRINE HYDROCHLORIDE [Concomitant]
     Active Substance: CETIRIZINE HYDROCHLORIDE\PSEUDOEPHEDRINE HYDROCHLORIDE
     Route: 016
  527. CETIRIZINE HYDROCHLORIDE\PSEUDOEPHEDRINE HYDROCHLORIDE [Concomitant]
     Active Substance: CETIRIZINE HYDROCHLORIDE\PSEUDOEPHEDRINE HYDROCHLORIDE
     Route: 005
  528. REMICADE [Concomitant]
     Active Substance: INFLIXIMAB
     Indication: Rheumatoid arthritis
  529. REMICADE [Concomitant]
     Active Substance: INFLIXIMAB
     Indication: Colitis ulcerative
     Route: 042
  530. REMICADE [Concomitant]
     Active Substance: INFLIXIMAB
     Indication: Psoriatic arthropathy
     Route: 042
  531. REMICADE [Concomitant]
     Active Substance: INFLIXIMAB
     Indication: Crohn^s disease
     Route: 042
  532. REMICADE [Concomitant]
     Active Substance: INFLIXIMAB
     Indication: Ankylosing spondylitis
     Route: 042
  533. REMICADE [Concomitant]
     Active Substance: INFLIXIMAB
     Route: 042
  534. REMICADE [Concomitant]
     Active Substance: INFLIXIMAB
  535. REMICADE [Concomitant]
     Active Substance: INFLIXIMAB
  536. REMICADE [Concomitant]
     Active Substance: INFLIXIMAB
  537. REMICADE [Concomitant]
     Active Substance: INFLIXIMAB
     Route: 040
  538. REMICADE [Concomitant]
     Active Substance: INFLIXIMAB
     Route: 040
  539. RISEDRONATE SODIUM [Concomitant]
     Active Substance: RISEDRONATE SODIUM
     Indication: Product used for unknown indication
  540. RISEDRONATE SODIUM [Concomitant]
     Active Substance: RISEDRONATE SODIUM
  541. RITUXIMAB [Concomitant]
     Active Substance: RITUXIMAB
     Indication: Rheumatoid arthritis
     Route: 040
  542. RITUXIMAB [Concomitant]
     Active Substance: RITUXIMAB
     Indication: Abdominal discomfort
     Route: 058
  543. RITUXIMAB [Concomitant]
     Active Substance: RITUXIMAB
     Route: 058
  544. RITUXIMAB [Concomitant]
     Active Substance: RITUXIMAB
     Route: 040
  545. RITUXIMAB [Concomitant]
     Active Substance: RITUXIMAB
     Route: 048
  546. RITUXIMAB [Concomitant]
     Active Substance: RITUXIMAB
     Route: 040
  547. RITUXIMAB [Concomitant]
     Active Substance: RITUXIMAB
     Route: 048
  548. RITUXIMAB [Concomitant]
     Active Substance: RITUXIMAB
     Route: 048
  549. RITUXIMAB [Concomitant]
     Active Substance: RITUXIMAB
     Route: 058
  550. RITUXIMAB [Concomitant]
     Active Substance: RITUXIMAB
  551. RITUXIMAB [Concomitant]
     Active Substance: RITUXIMAB
  552. RITUXIMAB [Concomitant]
     Active Substance: RITUXIMAB
     Route: 040
  553. RITUXIMAB [Concomitant]
     Active Substance: RITUXIMAB
     Route: 040
  554. RITUXIMAB [Concomitant]
     Active Substance: RITUXIMAB
     Route: 048
  555. SULFASALAZINE [Concomitant]
     Active Substance: SULFASALAZINE
     Indication: Rheumatoid arthritis
  556. SULFASALAZINE [Concomitant]
     Active Substance: SULFASALAZINE
     Route: 048
  557. FISH OIL [Concomitant]
     Active Substance: FISH OIL
     Indication: Rheumatoid arthritis
  558. FISH OIL [Concomitant]
     Active Substance: FISH OIL
  559. SIMPONI [Concomitant]
     Active Substance: GOLIMUMAB
     Indication: Rheumatoid arthritis
     Route: 042
  560. SIMPONI [Concomitant]
     Active Substance: GOLIMUMAB
     Indication: Psoriatic arthropathy
     Dosage: SOLUTION SUBCUTANEOUS
  561. SIMPONI [Concomitant]
     Active Substance: GOLIMUMAB
     Route: 058
  562. SIMPONI [Concomitant]
     Active Substance: GOLIMUMAB
     Route: 058
  563. SIMPONI [Concomitant]
     Active Substance: GOLIMUMAB
     Route: 048
  564. SIMPONI [Concomitant]
     Active Substance: GOLIMUMAB
     Route: 042
  565. SIMPONI [Concomitant]
     Active Substance: GOLIMUMAB
     Route: 058
  566. STELARA [Concomitant]
     Active Substance: USTEKINUMAB
     Indication: Psoriatic arthropathy
     Route: 058
  567. STELARA [Concomitant]
     Active Substance: USTEKINUMAB
     Indication: Rheumatoid arthritis
     Route: 042
  568. STELARA [Concomitant]
     Active Substance: USTEKINUMAB
     Route: 058
  569. STELARA [Concomitant]
     Active Substance: USTEKINUMAB
  570. STELARA [Concomitant]
     Active Substance: USTEKINUMAB
     Route: 042
  571. STELARA [Concomitant]
     Active Substance: USTEKINUMAB
     Route: 058
  572. SULFAMETHOXAZOLE [Concomitant]
     Active Substance: SULFAMETHOXAZOLE
     Indication: Product used for unknown indication
  573. SULFAMETHOXAZOLE [Concomitant]
     Active Substance: SULFAMETHOXAZOLE
  574. SULFAMETHOXAZOLE AND TRIMETHOPRIM [Concomitant]
     Active Substance: SULFAMETHOXAZOLE\TRIMETHOPRIM
     Indication: Product used for unknown indication
  575. SULFAMETHOXAZOLE AND TRIMETHOPRIM [Concomitant]
     Active Substance: SULFAMETHOXAZOLE\TRIMETHOPRIM
  576. SULFASALAZINE [Concomitant]
     Active Substance: SULFASALAZINE
     Indication: Rheumatoid arthritis
     Route: 048
  577. SULFASALAZINE [Concomitant]
     Active Substance: SULFASALAZINE
  578. SULFASALAZINE [Concomitant]
     Active Substance: SULFASALAZINE
  579. SULFASALAZINE [Concomitant]
     Active Substance: SULFASALAZINE
     Route: 048
  580. SULFASALAZINE [Concomitant]
     Active Substance: SULFASALAZINE
     Route: 048
  581. SULFASALAZINE [Concomitant]
     Active Substance: SULFASALAZINE
     Route: 048
  582. SULFASALAZINE [Concomitant]
     Active Substance: SULFASALAZINE
     Route: 048
  583. SULFASALAZINE [Concomitant]
     Active Substance: SULFASALAZINE
     Route: 058
  584. SULFASALAZINE [Concomitant]
     Active Substance: SULFASALAZINE
  585. SULFASALAZINE [Concomitant]
     Active Substance: SULFASALAZINE
     Route: 048
  586. SULFASALAZINE [Concomitant]
     Active Substance: SULFASALAZINE
  587. SULFASALAZINE [Concomitant]
     Active Substance: SULFASALAZINE
  588. SULFASALAZINE [Concomitant]
     Active Substance: SULFASALAZINE
     Route: 048
  589. SULFASALAZINE [Concomitant]
     Active Substance: SULFASALAZINE
  590. SULFASALAZINE [Concomitant]
     Active Substance: SULFASALAZINE
  591. TRAMADOL HYDROCHLORIDE [Concomitant]
     Active Substance: TRAMADOL HYDROCHLORIDE
     Indication: Product used for unknown indication
  592. TYLENOL [Concomitant]
     Active Substance: ACETAMINOPHEN
     Indication: Product used for unknown indication
  593. TYLENOL [Concomitant]
     Active Substance: ACETAMINOPHEN
  594. TYLENOL WITH CODEINE [Concomitant]
     Active Substance: ACETAMINOPHEN\CODEINE PHOSPHATE
     Indication: Product used for unknown indication
  595. TYLENOL WITH CODEINE [Concomitant]
     Active Substance: ACETAMINOPHEN\CODEINE PHOSPHATE
  596. VITAMIN C [Concomitant]
     Active Substance: ASCORBIC ACID
     Indication: Product used for unknown indication
  597. VITAMIN C [Concomitant]
     Active Substance: ASCORBIC ACID
  598. ERGOCALCIFEROL [Concomitant]
     Active Substance: ERGOCALCIFEROL
     Indication: Product used for unknown indication
  599. PREDNISONE [Concomitant]
     Active Substance: PREDNISONE
     Indication: Rheumatoid arthritis
     Route: 048
  600. PREDNISONE [Concomitant]
     Active Substance: PREDNISONE
     Route: 048
  601. PREDNISONE [Concomitant]
     Active Substance: PREDNISONE
  602. XELJANZ [Concomitant]
     Active Substance: TOFACITINIB CITRATE
     Indication: Rheumatoid arthritis
     Route: 048
  603. XELJANZ [Concomitant]
     Active Substance: TOFACITINIB CITRATE
     Indication: Psoriatic arthropathy
  604. XELJANZ [Concomitant]
     Active Substance: TOFACITINIB CITRATE
  605. XELJANZ [Concomitant]
     Active Substance: TOFACITINIB CITRATE
     Dosage: 5
     Route: 048
  606. XELJANZ [Concomitant]
     Active Substance: TOFACITINIB CITRATE
  607. XELJANZ [Concomitant]
     Active Substance: TOFACITINIB CITRATE
     Route: 048
  608. XELJANZ [Concomitant]
     Active Substance: TOFACITINIB CITRATE
  609. XELJANZ [Concomitant]
     Active Substance: TOFACITINIB CITRATE
     Route: 048
  610. XELJANZ [Concomitant]
     Active Substance: TOFACITINIB CITRATE
     Route: 016
  611. XELJANZ [Concomitant]
     Active Substance: TOFACITINIB CITRATE
  612. XELJANZ [Concomitant]
     Active Substance: TOFACITINIB CITRATE
  613. XELJANZ [Concomitant]
     Active Substance: TOFACITINIB CITRATE
     Route: 048
  614. XELJANZ [Concomitant]
     Active Substance: TOFACITINIB CITRATE
     Route: 048
  615. XELJANZ [Concomitant]
     Active Substance: TOFACITINIB CITRATE
  616. XELJANZ [Concomitant]
     Active Substance: TOFACITINIB CITRATE
     Route: 042
  617. XELJANZ [Concomitant]
     Active Substance: TOFACITINIB CITRATE
     Route: 058
  618. XELJANZ [Concomitant]
     Active Substance: TOFACITINIB CITRATE
  619. ALENDRONIC ACID [Concomitant]
     Active Substance: ALENDRONIC ACID
     Indication: Rheumatoid arthritis
  620. ALENDRONIC ACID [Concomitant]
     Active Substance: ALENDRONIC ACID
     Route: 016
  621. ALENDRONIC ACID [Concomitant]
     Active Substance: ALENDRONIC ACID
  622. ALENDRONIC ACID [Concomitant]
     Active Substance: ALENDRONIC ACID
     Route: 048
  623. ALENDRONIC ACID [Concomitant]
     Active Substance: ALENDRONIC ACID
     Route: 048
  624. CHOLECALCIFEROL [Concomitant]
     Active Substance: CHOLECALCIFEROL
     Indication: Rheumatoid arthritis
  625. CHOLECALCIFEROL [Concomitant]
     Active Substance: CHOLECALCIFEROL
     Route: 016
  626. PANTOPRAZOLE [Concomitant]
     Active Substance: PANTOPRAZOLE
     Indication: Product used for unknown indication
  627. PANTOPRAZOLE [Concomitant]
     Active Substance: PANTOPRAZOLE
  628. ACETAMINOPHEN AND CODEINE [Concomitant]
     Active Substance: ACETAMINOPHEN\CODEINE PHOSPHATE
     Indication: Product used for unknown indication
  629. DICLOFENAC SODIUM [Concomitant]
     Active Substance: DICLOFENAC SODIUM
     Indication: Product used for unknown indication
  630. HYDROXYCHLOROQUINE SULFATE [Concomitant]
     Active Substance: HYDROXYCHLOROQUINE SULFATE
     Indication: Rheumatoid arthritis
  631. ASCORBIC ACID [Concomitant]
     Active Substance: ASCORBIC ACID
     Indication: Product used for unknown indication
  632. ACETAMINOPHEN [Concomitant]
     Active Substance: ACETAMINOPHEN
     Indication: Product used for unknown indication
  633. ACETAMINOPHEN\CAFFEINE\CODEINE PHOSPHATE [Concomitant]
     Active Substance: ACETAMINOPHEN\CAFFEINE\CODEINE PHOSPHATE
     Indication: Product used for unknown indication
  634. CAFFEINE CITRATE [Concomitant]
     Active Substance: CAFFEINE CITRATE
     Indication: Product used for unknown indication
     Route: 048
  635. CALCIUM CARBONATE [Concomitant]
     Active Substance: CALCIUM CARBONATE
     Indication: Product used for unknown indication
  636. CALCIUM GLUBIONATE [Concomitant]
     Active Substance: CALCIUM GLUBIONATE
     Indication: Product used for unknown indication
  637. CALCIUM GLUBIONATE [Concomitant]
     Active Substance: CALCIUM GLUBIONATE
     Route: 016
  638. CELECOXIB [Concomitant]
     Active Substance: CELECOXIB
     Indication: Product used for unknown indication
  639. CETRIMIDE [Concomitant]
     Active Substance: CETRIMIDE
     Indication: Product used for unknown indication
  640. CHLORHEXIDINE [Concomitant]
     Active Substance: CHLORHEXIDINE
     Indication: Product used for unknown indication
  641. ETANERCEPT [Concomitant]
     Active Substance: ETANERCEPT
     Indication: Rheumatoid arthritis
     Route: 058
  642. ETANERCEPT [Concomitant]
     Active Substance: ETANERCEPT
  643. ETANERCEPT [Concomitant]
     Active Substance: ETANERCEPT
     Route: 058
  644. HYDROCORTISONE [Concomitant]
     Active Substance: HYDROCORTISONE
     Indication: Rheumatoid arthritis
  645. HYDROCORTISONE [Concomitant]
     Active Substance: HYDROCORTISONE
  646. HYDROCORTISONE [Concomitant]
     Active Substance: HYDROCORTISONE
  647. HYDROCORTISONE [Concomitant]
     Active Substance: HYDROCORTISONE
     Route: 058
  648. HYDROCORTISONE [Concomitant]
     Active Substance: HYDROCORTISONE
     Route: 048
  649. HYDROCORTISONE [Concomitant]
     Active Substance: HYDROCORTISONE
  650. HYDROCORTISONE [Concomitant]
     Active Substance: HYDROCORTISONE
     Route: 048
  651. HYDROXYCHLOROQUINE [Concomitant]
     Active Substance: HYDROXYCHLOROQUINE
     Indication: Rheumatoid arthritis
  652. HYDROXYCHLOROQUINE [Concomitant]
     Active Substance: HYDROXYCHLOROQUINE
     Route: 048
  653. HYDROXYCHLOROQUINE [Concomitant]
     Active Substance: HYDROXYCHLOROQUINE
     Route: 005
  654. LISINOPRIL [Concomitant]
     Active Substance: LISINOPRIL
     Indication: Product used for unknown indication
     Route: 048
  655. LORAZEPAM [Concomitant]
     Active Substance: LORAZEPAM
     Indication: Product used for unknown indication
  656. LORAZEPAM [Concomitant]
     Active Substance: LORAZEPAM
  657. MAGNESIUM [Concomitant]
     Active Substance: MAGNESIUM
     Indication: Product used for unknown indication
  658. MOXIFLOXACIN [Concomitant]
     Active Substance: MOXIFLOXACIN
     Indication: Product used for unknown indication
     Route: 058
  659. NAPROXEN [Concomitant]
     Active Substance: NAPROXEN
     Indication: Rheumatoid arthritis
  660. NAPROXEN [Concomitant]
     Active Substance: NAPROXEN
     Indication: Rheumatoid arthritis
  661. OXYCODONE AND ACETAMINOPHEN [Concomitant]
     Active Substance: ACETAMINOPHEN\OXYCODONE HYDROCHLORIDE
     Indication: Product used for unknown indication
  662. PREDNISONE [Concomitant]
     Active Substance: PREDNISONE
     Indication: Systemic lupus erythematosus
  663. PREDNISONE [Concomitant]
     Active Substance: PREDNISONE
     Indication: Synovitis
     Route: 042
  664. PREDNISONE [Concomitant]
     Active Substance: PREDNISONE
     Indication: Rheumatoid arthritis
     Route: 048
  665. PREDNISONE [Concomitant]
     Active Substance: PREDNISONE
     Indication: Psoriatic arthropathy
  666. PREDNISONE [Concomitant]
     Active Substance: PREDNISONE
     Indication: Pemphigus
  667. PREDNISONE [Concomitant]
     Active Substance: PREDNISONE
     Indication: Condition aggravated
     Route: 016
  668. PREDNISONE [Concomitant]
     Active Substance: PREDNISONE
     Route: 048
  669. PREDNISONE [Concomitant]
     Active Substance: PREDNISONE
     Route: 058
  670. PREDNISONE [Concomitant]
     Active Substance: PREDNISONE
     Route: 048
  671. PREVACID [Concomitant]
     Active Substance: LANSOPRAZOLE
     Indication: Product used for unknown indication
  672. PSEUDOEPHEDRINE [Concomitant]
     Active Substance: PSEUDOEPHEDRINE
     Indication: Rheumatoid arthritis
  673. PSEUDOEPHEDRINE [Concomitant]
     Active Substance: PSEUDOEPHEDRINE
  674. PSEUDOEPHEDRINE [Concomitant]
     Active Substance: PSEUDOEPHEDRINE
  675. RITUXAN [Concomitant]
     Active Substance: RITUXIMAB
     Indication: Rheumatoid arthritis
     Route: 042
  676. SARILUMAB [Concomitant]
     Active Substance: SARILUMAB
     Indication: Product used for unknown indication
  677. SOLU-MEDROL [Concomitant]
     Active Substance: METHYLPREDNISOLONE SODIUM SUCCINATE
     Indication: Product used for unknown indication
  678. TOPICORT [Concomitant]
     Active Substance: DESOXIMETASONE
     Indication: Rheumatoid arthritis
  679. TOPICORT [Concomitant]
     Active Substance: DESOXIMETASONE
     Route: 058
  680. TOPICORT [Concomitant]
     Active Substance: DESOXIMETASONE
     Route: 003
  681. VITAMIN D3 [Concomitant]
     Active Substance: CHOLECALCIFEROL
     Indication: Rheumatoid arthritis
  682. DICLOFENAC [Concomitant]
     Active Substance: DICLOFENAC
     Indication: Product used for unknown indication
  683. ZESTRIL [Concomitant]
     Active Substance: LISINOPRIL
     Indication: Product used for unknown indication
  684. CODEINE PHOSPHATE [Concomitant]
     Active Substance: CODEINE PHOSPHATE
     Indication: Product used for unknown indication
  685. HYDROCORTISONE BUTYRATE [Concomitant]
     Active Substance: HYDROCORTISONE BUTYRATE
     Indication: Rheumatoid arthritis
     Route: 048
  686. HYDROCORTISONE BUTYRATE [Concomitant]
     Active Substance: HYDROCORTISONE BUTYRATE
  687. PANTOPRAZOLE SODIUM [Concomitant]
     Active Substance: PANTOPRAZOLE SODIUM
     Indication: Dyspepsia
     Route: 016
  688. PANTOPRAZOLE SODIUM [Concomitant]
     Active Substance: PANTOPRAZOLE SODIUM
  689. PANTOPRAZOLE SODIUM [Concomitant]
     Active Substance: PANTOPRAZOLE SODIUM
  690. PANTOPRAZOLE SODIUM [Concomitant]
     Active Substance: PANTOPRAZOLE SODIUM
  691. HYALURONIDASE (HUMAN RECOMBINANT)\RITUXIMAB [Concomitant]
     Active Substance: HYALURONIDASE (HUMAN RECOMBINANT)\RITUXIMAB
     Indication: Rheumatoid arthritis
     Route: 058
  692. DIETARY SUPPLEMENT\HERBALS [Concomitant]
     Active Substance: DIETARY SUPPLEMENT\HERBALS
     Indication: Product used for unknown indication
     Route: 048
  693. ALENDRONATE SODIUM\CHOLECALCIFEROL [Concomitant]
     Active Substance: ALENDRONATE SODIUM\CHOLECALCIFEROL
     Indication: Rheumatoid arthritis
  694. APREMILAST [Concomitant]
     Active Substance: APREMILAST
     Indication: Product used for unknown indication
  695. APREMILAST [Concomitant]
     Active Substance: APREMILAST
  696. APREMILAST [Concomitant]
     Active Substance: APREMILAST
     Route: 042
  697. APREMILAST [Concomitant]
     Active Substance: APREMILAST
     Route: 042
  698. APREMILAST [Concomitant]
     Active Substance: APREMILAST
     Route: 048
  699. ASACOL [Concomitant]
     Active Substance: MESALAMINE
     Indication: Rheumatoid arthritis
  700. BORAGE OIL [Concomitant]
     Active Substance: BORAGE OIL
     Indication: Product used for unknown indication
  701. CALCIUM [Concomitant]
     Active Substance: CALCIUM
     Indication: Product used for unknown indication
  702. CALCIUM CARBONATE [Concomitant]
     Active Substance: CALCIUM CARBONATE
     Indication: Product used for unknown indication
     Route: 016
  703. CALCIUM CARBONATE [Concomitant]
     Active Substance: CALCIUM CARBONATE
  704. CELECOXIB [Concomitant]
     Active Substance: CELECOXIB
     Indication: Product used for unknown indication
  705. CELECOXIB [Concomitant]
     Active Substance: CELECOXIB
     Route: 048
  706. CERTOLIZUMAB PEGOL [Concomitant]
     Active Substance: CERTOLIZUMAB PEGOL
     Indication: Product used for unknown indication
  707. CHLORHEXIDINE GLUCONATE [Concomitant]
     Active Substance: CHLORHEXIDINE GLUCONATE
     Indication: Product used for unknown indication
     Route: 061
  708. CHLORHEXIDINE GLUCONATE [Concomitant]
     Active Substance: CHLORHEXIDINE GLUCONATE
     Route: 048
  709. CHLORHEXIDINE GLUCONATE [Concomitant]
     Active Substance: CHLORHEXIDINE GLUCONATE
     Route: 002
  710. DILTIAZEM [Concomitant]
     Active Substance: DILTIAZEM
     Indication: Product used for unknown indication
  711. DILTIAZEM HYDROCHLORIDE [Concomitant]
     Active Substance: DILTIAZEM HYDROCHLORIDE
     Indication: Product used for unknown indication
  712. DILTIAZEM HYDROCHLORIDE [Concomitant]
     Active Substance: DILTIAZEM HYDROCHLORIDE
     Route: 042
  713. DOXYCYCLINE [Concomitant]
     Active Substance: DOXYCYCLINE
     Indication: Product used for unknown indication
  714. DOXYCYCLINE HYCLATE [Concomitant]
     Active Substance: DOXYCYCLINE HYCLATE
     Indication: Rheumatoid arthritis
  715. DOXYCYCLINE HYCLATE [Concomitant]
     Active Substance: DOXYCYCLINE HYCLATE
  716. DOXYCYCLINE HYCLATE [Concomitant]
     Active Substance: DOXYCYCLINE HYCLATE
  717. ENTYVIO [Concomitant]
     Active Substance: VEDOLIZUMAB
     Indication: Product used for unknown indication
  718. ENTYVIO [Concomitant]
     Active Substance: VEDOLIZUMAB
  719. ENTYVIO [Concomitant]
     Active Substance: VEDOLIZUMAB
  720. ENTYVIO [Concomitant]
     Active Substance: VEDOLIZUMAB
  721. HYDROCORTISONE [Concomitant]
     Active Substance: HYDROCORTISONE
     Indication: Rheumatoid arthritis
     Route: 048
  722. HYDROCORTISONE [Concomitant]
     Active Substance: HYDROCORTISONE
  723. HYDROCORTISONE [Concomitant]
     Active Substance: HYDROCORTISONE
     Route: 061
  724. HYDROCORTISONE [Concomitant]
     Active Substance: HYDROCORTISONE
     Route: 003
  725. HYDROCORTISONE [Concomitant]
     Active Substance: HYDROCORTISONE
     Route: 058
  726. HYDROCORTISONE ACETATE [Concomitant]
     Active Substance: HYDROCORTISONE ACETATE
     Indication: Rheumatoid arthritis
  727. HYDROCORTISONE ACETATE [Concomitant]
     Active Substance: HYDROCORTISONE ACETATE
  728. HYDROCORTISONE ACETATE [Concomitant]
     Active Substance: HYDROCORTISONE ACETATE
     Route: 058
  729. HYDROCORTISONE ACETATE [Concomitant]
     Active Substance: HYDROCORTISONE ACETATE
     Route: 048
  730. HYDROCORTISONE ACETATE [Concomitant]
     Active Substance: HYDROCORTISONE ACETATE
     Route: 003
  731. HYDROCORTISONE ACETATE [Concomitant]
     Active Substance: HYDROCORTISONE ACETATE
     Route: 061
  732. HYDROCORTISONE ACETATE [Concomitant]
     Active Substance: HYDROCORTISONE ACETATE
  733. HYDROCORTISONE ACETATE [Concomitant]
     Active Substance: HYDROCORTISONE ACETATE
  734. HYDROCORTISONE BUTYRATE [Concomitant]
     Active Substance: HYDROCORTISONE BUTYRATE
     Indication: Rheumatoid arthritis
     Route: 048
  735. HYDROCORTISONE BUTYRATE [Concomitant]
     Active Substance: HYDROCORTISONE BUTYRATE
     Route: 058
  736. HYDROCORTISONE SODIUM SUCCINATE [Concomitant]
     Active Substance: HYDROCORTISONE SODIUM SUCCINATE
     Indication: Rheumatoid arthritis
  737. HYDROCORTISONE SODIUM SUCCINATE [Concomitant]
     Active Substance: HYDROCORTISONE SODIUM SUCCINATE
     Route: 048
  738. OXYCODONE AND ACETAMINOPHEN [Concomitant]
     Active Substance: ACETAMINOPHEN\OXYCODONE HYDROCHLORIDE
     Indication: Product used for unknown indication
  739. OXYCODONE AND ACETAMINOPHEN [Concomitant]
     Active Substance: ACETAMINOPHEN\OXYCODONE HYDROCHLORIDE
  740. AIMOVIG [Concomitant]
     Active Substance: ERENUMAB-AOOE
     Indication: Migraine
  741. AZATHIOPRINE [Concomitant]
     Active Substance: AZATHIOPRINE
     Indication: Rheumatoid arthritis
  742. AMINOSALICYLATE CALCIUM [Concomitant]
     Active Substance: AMINOSALICYLATE CALCIUM
     Indication: Product used for unknown indication
  743. CALCITRIOL;CALCIUM CARBONATE;COPPER SULFATE;MANGANESE SULFATE;ZINC SUL [Concomitant]
     Indication: Product used for unknown indication
     Route: 016
  744. CALCITRIOL;CALCIUM CARBONATE;COPPER SULFATE;MANGANESE SULFATE;ZINC SUL [Concomitant]
  745. CALCIUM LACTATE [Concomitant]
     Active Substance: CALCIUM LACTATE
     Indication: Product used for unknown indication
  746. CHLORHEXIDINE GLUCONATE\ISOPROPYL ALCOHOL [Concomitant]
     Active Substance: CHLORHEXIDINE GLUCONATE\ISOPROPYL ALCOHOL
     Indication: Product used for unknown indication
     Route: 002
  747. CHLORHEXIDINE GLUCONATE\ISOPROPYL ALCOHOL [Concomitant]
     Active Substance: CHLORHEXIDINE GLUCONATE\ISOPROPYL ALCOHOL
  748. DIPHENHYDRAMINE [Concomitant]
     Active Substance: DIPHENHYDRAMINE
     Indication: Product used for unknown indication
  749. EMEND [Concomitant]
     Active Substance: APREPITANT
     Indication: Rheumatoid arthritis
     Route: 048
  750. EMEND [Concomitant]
     Active Substance: APREPITANT
  751. ETHINYL ESTRADIOL\NORETHINDRONE [Concomitant]
     Active Substance: ETHINYL ESTRADIOL\NORETHINDRONE
     Indication: Rheumatoid arthritis
  752. HYALURONIDASE [Concomitant]
     Active Substance: HYALURONIDASE
     Indication: Rheumatoid arthritis
  753. ISOPROPYL ALCOHOL [Concomitant]
     Active Substance: ISOPROPYL ALCOHOL
     Indication: Rheumatoid arthritis
     Route: 061
  754. ISOPROPYL ALCOHOL [Concomitant]
     Active Substance: ISOPROPYL ALCOHOL
     Route: 058
  755. CLIOQUINOL\FLUMETHASONE [Concomitant]
     Active Substance: CLIOQUINOL\FLUMETHASONE
     Indication: Product used for unknown indication
  756. CLIOQUINOL\FLUMETHASONE [Concomitant]
     Active Substance: CLIOQUINOL\FLUMETHASONE
  757. MORPHINE [Concomitant]
     Active Substance: MORPHINE
     Indication: Rheumatoid arthritis
     Route: 048
  758. PARA-AMINOSALICYLIC ACID [Concomitant]
     Active Substance: AMINOSALICYLIC ACID
     Indication: Product used for unknown indication
  759. PERCOCET [Concomitant]
     Active Substance: ACETAMINOPHEN\OXYCODONE HYDROCHLORIDE
     Indication: Product used for unknown indication
  760. PREGABALIN [Concomitant]
     Active Substance: PREGABALIN
     Indication: Product used for unknown indication
  761. ALBUTEROL [Concomitant]
     Active Substance: ALBUTEROL
     Indication: Product used for unknown indication
  762. HYALURONIDASE (HUMAN RECOMBINANT) [Concomitant]
     Active Substance: HYALURONIDASE (HUMAN RECOMBINANT)
     Indication: Rheumatoid arthritis
     Route: 042
  763. HYALURONIDASE (HUMAN RECOMBINANT) [Concomitant]
     Active Substance: HYALURONIDASE (HUMAN RECOMBINANT)
     Route: 058
  764. HYALURONIDASE (HUMAN RECOMBINANT) [Concomitant]
     Active Substance: HYALURONIDASE (HUMAN RECOMBINANT)
     Route: 042

REACTIONS (2)
  - Death [Fatal]
  - Off label use [Unknown]
